FAERS Safety Report 5961705-4 (Version None)
Quarter: 2008Q4

REPORT INFORMATION
  Report Type: 
  Country: None (occurrence: None)
  Receive Date: 20081121
  Receipt Date: 20081113
  Transmission Date: 20090506
  Serious: Yes (Hospitalization)
  Sender: FDA-Public Use
  Company Number: IT-BAYER-200830575GPV

PATIENT
  Age: 73 Year
  Sex: Male

DRUGS (3)
  1. ASPIRIN [Suspect]
     Indication: ANTICOAGULANT THERAPY
     Dosage: TOTAL DAILY DOSE: 100 MG
     Route: 048
     Dates: start: 19981101, end: 20081101
  2. QUINAZIDE [Concomitant]
     Indication: HYPERTENSION
     Dosage: TOTAL DAILY DOSE: 32.5 MG
     Route: 048
     Dates: start: 19981101, end: 20081101
  3. MITTOVAN [Concomitant]
     Indication: HYPERTENSION
     Dosage: TOTAL DAILY DOSE: 10 MG
     Route: 048
     Dates: start: 19981101, end: 20081101

REACTIONS (3)
  - DUODENAL STENOSIS [None]
  - DUODENITIS [None]
  - EROSIVE OESOPHAGITIS [None]
